FAERS Safety Report 7826972-0 (Version None)
Quarter: 2011Q4

REPORT INFORMATION
  Report Type: 
  Country: None (occurrence: None)
  Receive Date: 20111019
  Receipt Date: 20111019
  Transmission Date: 20120403
  Serious: Yes (Life-Threatening, Hospitalization)
  Sender: FDA-Public Use
  Company Number: None

PATIENT
  Sex: Male
  Weight: 58.0604 kg

DRUGS (9)
  1. PROZAC [Concomitant]
  2. OMEPRAZOLE [Concomitant]
  3. FLEXERIL [Concomitant]
  4. AMBIEN [Suspect]
     Indication: SOMNOLENCE
     Dosage: AMBIEN 10MG NIGHTLY
     Dates: start: 20091101, end: 20100801
  5. AMBIEN [Suspect]
     Indication: ANXIETY
     Dosage: AMBIEN 10MG NIGHTLY
     Dates: start: 20091101, end: 20100801
  6. AMBIEN [Suspect]
     Indication: SEDATION
     Dosage: AMBIEN 10MG NIGHTLY
     Dates: start: 20091101, end: 20100801
  7. OXYCODONE HCL [Concomitant]
  8. FENTANYL [Concomitant]
  9. NEURONTIN [Concomitant]

REACTIONS (6)
  - ABNORMAL SLEEP-RELATED EVENT [None]
  - WEIGHT DECREASED [None]
  - DEPRESSION [None]
  - DECREASED APPETITE [None]
  - FALL [None]
  - SELF-INJURIOUS IDEATION [None]
